FAERS Safety Report 17949179 (Version 1)
Quarter: 2020Q2

REPORT INFORMATION
  Report Type: Spontaneous
  Country: US (occurrence: US)
  Receive Date: 20200626
  Receipt Date: 20200626
  Transmission Date: 20200714
  Serious: Yes (Death, Other)
  Sender: FDA-Public Use
  Company Number: US-GILEAD-2020-0475738

PATIENT
  Age: 56 Year
  Sex: Male
  Weight: 80.8 kg

DRUGS (21)
  1. REMDESIVIR. [Suspect]
     Active Substance: REMDESIVIR
     Indication: COVID-19
     Dosage: 200 MG, QD
     Route: 042
     Dates: start: 20200612, end: 20200612
  2. EPINEPHRINE. [Concomitant]
     Active Substance: EPINEPHRINE
  3. LINEZOLID. [Concomitant]
     Active Substance: LINEZOLID
  4. MULTIVITAMINS;MINERALS [Concomitant]
  5. ENOXAPARIN [Concomitant]
     Active Substance: ENOXAPARIN
  6. HEPARIN [Concomitant]
     Active Substance: HEPARIN SODIUM
  7. AZITHROMYCIN ANHYDROUS. [Concomitant]
     Active Substance: AZITHROMYCIN ANHYDROUS
  8. CISATRACURIUM. [Concomitant]
     Active Substance: CISATRACURIUM
  9. MIDAZOLAM. [Concomitant]
     Active Substance: MIDAZOLAM
  10. NOREPINEPHRINE. [Concomitant]
     Active Substance: NOREPINEPHRINE
  11. PIPERACILLIN AND TAZOBACTAM [Concomitant]
     Active Substance: PIPERACILLIN SODIUM\TAZOBACTAM SODIUM
  12. PROPOFOL. [Concomitant]
     Active Substance: PROPOFOL
     Dosage: UNK
  13. CEFTRIAXONE SODIUM. [Concomitant]
     Active Substance: CEFTRIAXONE SODIUM
  14. EPOPROSTENOL [EPOPROSTENOL SODIUM] [Concomitant]
  15. SENOKOT-S [Concomitant]
     Active Substance: DOCUSATE SODIUM\SENNOSIDES
  16. FENTANYL. [Concomitant]
     Active Substance: FENTANYL
  17. ALBUMIN (HUMAN) [Concomitant]
     Active Substance: ALBUMIN HUMAN
  18. FOLIC ACID. [Concomitant]
     Active Substance: FOLIC ACID
  19. DUONEB [Concomitant]
     Active Substance: ALBUTEROL SULFATE\IPRATROPIUM BROMIDE
  20. PANTOPRAZOLE [Concomitant]
     Active Substance: PANTOPRAZOLE
  21. PHENYLEPHRINE [Concomitant]
     Active Substance: PHENYLEPHRINE HYDROCHLORIDE

REACTIONS (2)
  - Death [Fatal]
  - Blood creatinine increased [Not Recovered/Not Resolved]

NARRATIVE: CASE EVENT DATE: 20200616
